FAERS Safety Report 9421933 (Version 2)
Quarter: 2013Q3

REPORT INFORMATION
  Report Type: Spontaneous
  Country: US (occurrence: US)
  Receive Date: 20130726
  Receipt Date: 20130819
  Transmission Date: 20140515
  Serious: Yes (Other)
  Sender: FDA-Public Use
  Company Number: US-PFIZER INC-2013217382

PATIENT
  Sex: Female

DRUGS (1)
  1. CELEBREX [Suspect]
     Dosage: 400 MG 2 PILLS UNKNOWN FREQUENCY

REACTIONS (8)
  - Apparent death [Unknown]
  - Rash [Unknown]
  - Dry skin [Unknown]
  - Skin disorder [Unknown]
  - Pruritus [Unknown]
  - Feeling abnormal [Unknown]
  - Acne [Unknown]
  - Skin discolouration [Unknown]
